FAERS Safety Report 19824592 (Version 2)
Quarter: 2021Q4

REPORT INFORMATION
  Report Type: Spontaneous
  Country: CH (occurrence: CH)
  Receive Date: 20210914
  Receipt Date: 20211005
  Transmission Date: 20220303
  Serious: Yes (Other)
  Sender: FDA-Public Use
  Company Number: CH-SUN PHARMACEUTICAL INDUSTRIES LTD-2021RR-310756

PATIENT
  Age: 63 Year
  Sex: Male

DRUGS (2)
  1. SEROQUEL [Suspect]
     Active Substance: QUETIAPINE FUMARATE
     Indication: Bipolar disorder
     Dosage: 200 MILLIGRAM, DAILY
     Route: 065
  2. SEROQUEL [Suspect]
     Active Substance: QUETIAPINE FUMARATE
     Dosage: 400 MILLIGRAM, DAILY
     Route: 065

REACTIONS (5)
  - Sedation [Recovering/Resolving]
  - Movement disorder [Recovering/Resolving]
  - Tremor [Recovering/Resolving]
  - Constipation [Unknown]
  - Drug ineffective [Unknown]
